FAERS Safety Report 7792517-7 (Version None)
Quarter: 2011Q3

REPORT INFORMATION
  Report Type: 
  Country: None (occurrence: None)
  Receive Date: 20110930
  Receipt Date: 20110930
  Transmission Date: 20111222
  Serious: Yes (Other)
  Sender: FDA-Public Use
  Company Number: None

PATIENT
  Sex: Female
  Weight: 58.9676 kg

DRUGS (1)
  1. PROPAFENONE HCL [Suspect]
     Dosage: 150 MG 3 TIMES DAY
     Dates: start: 20110612, end: 20110818

REACTIONS (7)
  - TREMOR [None]
  - CONFUSIONAL STATE [None]
  - VISUAL IMPAIRMENT [None]
  - DIZZINESS [None]
  - EYELID PTOSIS [None]
  - MUSCULAR WEAKNESS [None]
  - VISION BLURRED [None]
